FAERS Safety Report 17788232 (Version 1)
Quarter: 2020Q2

REPORT INFORMATION
  Report Type: Report from Study
  Country: CA (occurrence: CA)
  Receive Date: 20200514
  Receipt Date: 20200514
  Transmission Date: 20200714
  Serious: Yes (Other)
  Sender: FDA-Public Use
  Company Number: CA-JNJFOC-20200128802

PATIENT
  Age: 62 Year
  Sex: Female
  Weight: 96.1 kg

DRUGS (3)
  1. STELARA [Suspect]
     Active Substance: USTEKINUMAB
     Indication: CROHN^S DISEASE
     Route: 058
     Dates: start: 20191121
  2. STELARA [Suspect]
     Active Substance: USTEKINUMAB
  3. PREDNISONE. [Concomitant]
     Active Substance: PREDNISONE
     Indication: CROHN^S DISEASE
     Dosage: 7 TABLETS
     Route: 048
     Dates: start: 20191121, end: 20200116

REACTIONS (4)
  - Crohn^s disease [Not Recovered/Not Resolved]
  - Headache [Unknown]
  - Ligament rupture [Not Recovered/Not Resolved]
  - Therapeutic product effect decreased [Unknown]

NARRATIVE: CASE EVENT DATE: 201911
